FAERS Safety Report 8547394-3 (Version None)
Quarter: 2012Q3

REPORT INFORMATION
  Report Type: 
  Country: None (occurrence: None)
  Receive Date: 20120727
  Receipt Date: 20120409
  Transmission Date: 20120928
  Serious: No
  Sender: FDA-Public Use
  Company Number: US-ASTRAZENECA-2012SE23254

PATIENT
  Age: 44 Year
  Sex: Male
  Weight: 74.8 kg

DRUGS (5)
  1. SEROQUEL [Suspect]
     Route: 048
  2. SEROQUEL [Suspect]
     Indication: SLEEP DISORDER
     Route: 048
  3. SEROQUEL [Suspect]
     Indication: INSOMNIA
     Route: 048
  4. MEDICATIONS FOR SLEEP [Concomitant]
     Indication: SLEEP DISORDER
  5. SEROQUEL [Suspect]
     Route: 048

REACTIONS (4)
  - OFF LABEL USE [None]
  - INSOMNIA [None]
  - DRUG INEFFECTIVE FOR UNAPPROVED INDICATION [None]
  - TACHYPHRENIA [None]
